FAERS Safety Report 20041548 (Version 2)
Quarter: 2021Q4

REPORT INFORMATION
  Report Type: Report from Study
  Country: BR (occurrence: BR)
  Receive Date: 20211108
  Receipt Date: 20211223
  Transmission Date: 20220303
  Serious: Yes (Hospitalization)
  Sender: FDA-Public Use
  Company Number: BR-BRISTOL-MYERS SQUIBB COMPANY-BMS-2021-117032

PATIENT
  Age: 73 Year
  Sex: Female

DRUGS (1)
  1. APIXABAN [Suspect]
     Active Substance: APIXABAN
     Indication: Product used for unknown indication
     Dosage: 5 MILLIGRAM
     Route: 065
     Dates: start: 20211005

REACTIONS (4)
  - Heart rate decreased [Unknown]
  - Dyspnoea [Unknown]
  - Retching [Unknown]
  - Headache [Unknown]

NARRATIVE: CASE EVENT DATE: 20211030
